FAERS Safety Report 16643494 (Version 1)
Quarter: 2019Q3

REPORT INFORMATION
  Report Type: Spontaneous
  Country: US (occurrence: US)
  Receive Date: 20190729
  Receipt Date: 20190729
  Transmission Date: 20191004
  Serious: No
  Sender: FDA-Public Use
  Company Number: US-PRINSTON PHARMACEUTICAL INC.-2019PRN00523

PATIENT
  Sex: Female

DRUGS (2)
  1. CLONAZEPAM. [Suspect]
     Active Substance: CLONAZEPAM
     Indication: PANIC ATTACK
     Dosage: UNK
  2. CLONAZEPAM. [Suspect]
     Active Substance: CLONAZEPAM
     Indication: ANXIETY

REACTIONS (10)
  - Presyncope [Unknown]
  - Reaction to excipient [Unknown]
  - Feeling abnormal [Unknown]
  - Thinking abnormal [Unknown]
  - Drug ineffective [Unknown]
  - Diarrhoea [Unknown]
  - Affect lability [Unknown]
  - Irritability [Unknown]
  - Withdrawal syndrome [Unknown]
  - Heart rate increased [Unknown]

NARRATIVE: CASE EVENT DATE: 20190404
